FAERS Safety Report 17688534 (Version 1)
Quarter: 2020Q2

REPORT INFORMATION
  Report Type: Spontaneous
  Country: DE (occurrence: DE)
  Receive Date: 20200421
  Receipt Date: 20200421
  Transmission Date: 20200714
  Serious: Yes (Other)
  Sender: FDA-Public Use
  Company Number: DE-BAUSCH-BL-2019-016588

PATIENT
  Age: 48 Year
  Sex: Female

DRUGS (1)
  1. LORAZEPAM. [Suspect]
     Active Substance: LORAZEPAM
     Indication: SCHIZOPHRENIA
     Dosage: DAILY USE ABOUT 6 MG
     Route: 065

REACTIONS (4)
  - Vascular injury [Unknown]
  - Anxiety [Unknown]
  - Withdrawal syndrome [Unknown]
  - Panic reaction [Unknown]
